FAERS Safety Report 5021516-3 (Version None)
Quarter: 2006Q2

REPORT INFORMATION
  Report Type: 
  Country: None (occurrence: None)
  Receive Date: 20060605
  Receipt Date: 20030922
  Transmission Date: 20061013
  Serious: Yes (Other)
  Sender: FDA-Public Use
  Company Number: CHPA2003US04223

PATIENT
  Age: 42 Year
  Sex: Male
  Weight: 73.9 kg

DRUGS (9)
  1. FERROUS SULFATE TAB [Suspect]
     Indication: ANAEMIA
     Dosage: SEE IMAGE
     Route: 048
     Dates: start: 20030910, end: 20030910
  2. FERROUS SULFATE TAB [Suspect]
     Indication: ANAEMIA
     Dosage: SEE IMAGE
     Route: 048
     Dates: start: 20030911, end: 20030914
  3. PREDNISONE TAB [Concomitant]
  4. PRILOSEC [Concomitant]
  5. TYLENOL W/ CODEINE NO. 3 [Concomitant]
  6. LASIX [Concomitant]
  7. POTASSIUM (POTASSIUM) [Concomitant]
  8. BACLOFEN [Concomitant]
  9. NATURE MADE IRON [Concomitant]

REACTIONS (7)
  - CHEST PAIN [None]
  - DIZZINESS [None]
  - DYSPEPSIA [None]
  - MOTOR DYSFUNCTION [None]
  - MULTIPLE SCLEROSIS [None]
  - MYOCARDIAL INFARCTION [None]
  - PAIN [None]
